FAERS Safety Report 5601149-8 (Version None)
Quarter: 2008Q1

REPORT INFORMATION
  Report Type: 
  Country: None (occurrence: None)
  Receive Date: 20080122
  Receipt Date: 20080122
  Transmission Date: 20080703
  Serious: No
  Sender: FDA-Public Use
  Company Number: None

PATIENT
  Age: 54 Year
  Sex: Female
  Weight: 63.5036 kg

DRUGS (1)
  1. BUPROPION HCL [Suspect]
     Indication: AFFECTIVE DISORDER
     Dosage: 1 Q DAY PO
     Route: 048
     Dates: start: 20070930, end: 20071030

REACTIONS (3)
  - ABDOMINAL PAIN UPPER [None]
  - CHEST PAIN [None]
  - THERAPEUTIC RESPONSE UNEXPECTED WITH DRUG SUBSTITUTION [None]
